FAERS Safety Report 5118413-1 (Version None)
Quarter: 2006Q3

REPORT INFORMATION
  Report Type: 
  Country: None (occurrence: None)
  Receive Date: 20060926
  Receipt Date: 20060917
  Transmission Date: 20061208
  Serious: Yes (Other)
  Sender: FDA-Public Use
  Company Number: 2006112196

PATIENT
  Sex: Male

DRUGS (2)
  1. UNISOM [Suspect]
     Dosage: 20 TABLETS, ORAL
     Route: 048
     Dates: start: 20060917, end: 20060917
  2. ETHANOL (ETHANOL) [Suspect]
     Dosage: ORAL
     Route: 048
     Dates: start: 20060917, end: 20060917

REACTIONS (2)
  - ALCOHOL USE [None]
  - INCORRECT DOSE ADMINISTERED [None]
